FAERS Safety Report 4664832-7 (Version None)
Quarter: 2005Q2

REPORT INFORMATION
  Report Type: 
  Country: None (occurrence: None)
  Receive Date: 20050517
  Receipt Date: 20050517
  Transmission Date: 20051028
  Serious: Yes (Life-Threatening, Hospitalization)
  Sender: FDA-Public Use
  Company Number: None

PATIENT
  Sex: Male
  Weight: 87.5 kg

DRUGS (2)
  1. ASPIRIN [Suspect]
     Indication: CEREBROVASCULAR ACCIDENT PROPHYLAXIS
     Dosage: 325 MG PO DAILY
     Route: 048
     Dates: start: 20040101, end: 20050125
  2. CLOPIDOGREL (PLAVIX) 75MG [Suspect]
     Indication: CEREBROVASCULAR ACCIDENT PROPHYLAXIS
     Dosage: 75 MG PO DAILY
     Route: 048
     Dates: start: 20040429, end: 20050125

REACTIONS (2)
  - HEADACHE [None]
  - VOMITING [None]
